FAERS Safety Report 8363950-X (Version None)
Quarter: 2012Q2

REPORT INFORMATION
  Report Type: 
  Country: None (occurrence: None)
  Receive Date: 20120515
  Receipt Date: 20120515
  Transmission Date: 20120825
  Serious: Yes (Disabling, Other)
  Sender: FDA-Public Use
  Company Number: None

PATIENT
  Sex: Male
  Weight: 94.3482 kg

DRUGS (4)
  1. ALPRAZOLAM [Suspect]
     Indication: SOCIAL PHOBIA
     Dosage: 1MG 3 TIMES A DAY
  2. ALPRAZOLAM [Suspect]
     Indication: GENERALISED ANXIETY DISORDER
     Dosage: 1MG 3 TIMES A DAY
  3. LORAZEPAM [Suspect]
     Dates: start: 20100101, end: 20120201
  4. XANAX [Suspect]
     Dates: start: 20120201

REACTIONS (3)
  - DRUG EFFECT DECREASED [None]
  - DRUG INEFFECTIVE [None]
  - PRODUCT FORMULATION ISSUE [None]
